FAERS Safety Report 4517817-5 (Version None)
Quarter: 2004Q4

REPORT INFORMATION
  Report Type: 
  Country: None (occurrence: None)
  Receive Date: 20041130
  Receipt Date: 20041115
  Transmission Date: 20050328
  Serious: No
  Sender: FDA-Public Use
  Company Number: A04200401096

PATIENT
  Sex: Male

DRUGS (2)
  1. PLAVIX [Suspect]
     Dosage: 75 MG OD, ORAL
     Route: 048
  2. GINGIUM - (GINKGO TREE LEAVES EXTRACT) - TABLET [Suspect]
     Dosage: ORAL
     Route: 048

REACTIONS (2)
  - DRUG INTERACTION [None]
  - VENOUS THROMBOSIS LIMB [None]
